FAERS Safety Report 11982150 (Version 3)
Quarter: 2016Q1

REPORT INFORMATION
  Report Type: Report from Study
  Country: NO (occurrence: NO)
  Receive Date: 20160201
  Receipt Date: 20160318
  Transmission Date: 20160526
  Serious: Yes (Life-Threatening, Hospitalization)
  Sender: FDA-Public Use
  Company Number: NO-ROCHE-1701724

PATIENT
  Age: 75 Year
  Sex: Male
  Weight: 52 kg

DRUGS (20)
  1. CANDESARTAN [Concomitant]
     Active Substance: CANDESARTAN
     Indication: HYPERTENSION
     Route: 065
     Dates: start: 20090101
  2. CETIRIZIN [Concomitant]
     Active Substance: CETIRIZINE HYDROCHLORIDE
     Indication: PREMEDICATION
     Route: 065
     Dates: start: 20130306
  3. TAMSULOSIN [Concomitant]
     Active Substance: TAMSULOSIN
     Indication: URINARY RETENTION
     Route: 065
     Dates: start: 20151008
  4. NEULASTA [Concomitant]
     Active Substance: PEGFILGRASTIM
     Indication: NEUTROPHIL COUNT DECREASED
     Route: 065
     Dates: start: 20130701, end: 20130701
  5. FOLATE [Concomitant]
     Active Substance: FOLATE SODIUM
     Route: 065
     Dates: start: 20150424, end: 20151206
  6. SIMVASTATIN. [Concomitant]
     Active Substance: SIMVASTATIN
     Indication: HYPERTENSION
     Route: 065
     Dates: start: 20090101
  7. PARACET (NORWAY) [Concomitant]
     Indication: PREMEDICATION
     Route: 065
     Dates: start: 20130306
  8. AMOXICILLIN. [Concomitant]
     Active Substance: AMOXICILLIN
     Indication: URINARY INCONTINENCE
     Route: 065
     Dates: start: 20151123, end: 20151201
  9. ALENDRONAT [Concomitant]
     Active Substance: ALENDRONATE SODIUM
     Indication: HYPERTENSION
     Route: 065
     Dates: start: 20090101
  10. ALBYL-E [Concomitant]
     Active Substance: ASPIRIN\MAGNESIUM OXIDE
     Indication: MYOCARDIAL INFARCTION
     Route: 065
     Dates: start: 20150424
  11. ZANTAC [Concomitant]
     Active Substance: RANITIDINE HYDROCHLORIDE
     Indication: GASTROOESOPHAGEAL REFLUX DISEASE
     Route: 065
     Dates: start: 20150201
  12. HYDROCHLOROTHIAZIDE. [Concomitant]
     Active Substance: HYDROCHLOROTHIAZIDE
     Indication: HYPERTENSION
     Route: 065
     Dates: start: 20090101
  13. RITUXIMAB [Suspect]
     Active Substance: RITUXIMAB
     Indication: NON-HODGKIN^S LYMPHOMA UNSPECIFIED HISTOLOGY INDOLENT
     Dosage: DATE OF LAST DOSE PRIOR TO SAE: 06/MAR/2013
     Route: 042
     Dates: start: 20130306, end: 20130306
  14. RITUXIMAB [Suspect]
     Active Substance: RITUXIMAB
     Indication: NON-HODGKIN^S LYMPHOMA UNSPECIFIED HISTOLOGY INDOLENT
     Dosage: DATE OF LAST DOSE PRIOR TO SAE: 24/NOV/2015 (FIRST EPISODE OF UROSEPSIS) AND 19/JAN/2016 (SECOND EPI
     Route: 058
     Dates: start: 20130403
  15. SOMAC [Concomitant]
     Active Substance: PANTOPRAZOLE SODIUM
     Indication: DUODENAL ULCER
     Route: 065
     Dates: start: 20150424, end: 20151206
  16. CALCIGRAN FORTE [Concomitant]
     Indication: OSTEOPOROSIS
     Route: 065
     Dates: start: 20110101
  17. PREDNISOLON [Concomitant]
     Active Substance: PREDNISOLONE
     Indication: PREMEDICATION
     Route: 065
     Dates: start: 20130306, end: 20130306
  18. SOMAC [Concomitant]
     Active Substance: PANTOPRAZOLE SODIUM
     Route: 065
     Dates: start: 20151207
  19. AMOXICILLIN. [Concomitant]
     Active Substance: AMOXICILLIN
     Indication: URINARY TRACT INFECTION
     Route: 065
     Dates: start: 20150808, end: 20150815
  20. FOLSYRE [Concomitant]
     Route: 065
     Dates: start: 20151207

REACTIONS (1)
  - Urosepsis [Recovered/Resolved]

NARRATIVE: CASE EVENT DATE: 20151207
